FAERS Safety Report 5008165-8 (Version None)
Quarter: 2006Q2

REPORT INFORMATION
  Report Type: 
  Country: None (occurrence: None)
  Receive Date: 20060404
  Receipt Date: 20051129
  Transmission Date: 20061013
  Serious: Yes (Hospitalization, Other)
  Sender: FDA-Public Use
  Company Number: 2005148513

PATIENT
  Age: 11 Year
  Sex: Male

DRUGS (6)
  1. GEODON [Suspect]
     Indication: BIPOLAR DISORDER
     Dosage: 60 MG (60 MG, 1 IN 1 D),
     Dates: start: 20050928
  2. STRATTERA [Concomitant]
  3. FOCALIN [Concomitant]
  4. METHYLPHENIDATE HCL [Concomitant]
  5. TOPAMAX [Concomitant]
  6. LITHIUM (LITHIUM) [Concomitant]

REACTIONS (5)
  - DIZZINESS [None]
  - ELECTROCARDIOGRAM QT PROLONGED [None]
  - HEADACHE [None]
  - NAUSEA [None]
  - VOMITING [None]
